FAERS Safety Report 8563531-9 (Version None)
Quarter: 2012Q3

REPORT INFORMATION
  Report Type: 
  Country: None (occurrence: None)
  Receive Date: 20120802
  Receipt Date: 20120730
  Transmission Date: 20120928
  Serious: Yes (Other)
  Sender: FDA-Public Use
  Company Number: US-AMGEN-USASP2012047866

PATIENT
  Sex: Female

DRUGS (7)
  1. PROLIA [Suspect]
     Indication: OSTEOPOROSIS POSTMENOPAUSAL
     Dosage: 60 MG, Q6MO
     Dates: start: 20110801
  2. VITAMIN B2                         /00154901/ [Concomitant]
  3. ELESTRIN [Concomitant]
  4. MAGNESIUM [Concomitant]
     Dosage: UNK
  5. CALCIUM [Concomitant]
  6. LEVOTHYROXINE SODIUM [Concomitant]
  7. VITAMIN D [Concomitant]

REACTIONS (5)
  - BONE DENSITY DECREASED [None]
  - ARTHRALGIA [None]
  - BACK PAIN [None]
  - BONE NEOPLASM MALIGNANT [None]
  - NUCLEAR MAGNETIC RESONANCE IMAGING ABNORMAL [None]
